FAERS Safety Report 9783792 (Version 2)
Quarter: 2013Q4

REPORT INFORMATION
  Report Type: Spontaneous
  Country: US (occurrence: US)
  Receive Date: 20131226
  Receipt Date: 20131226
  Transmission Date: 20140711
  Serious: Yes (Other)
  Sender: FDA-Public Use
  Company Number: US-PERRIGO-13US011547

PATIENT
  Sex: Female

DRUGS (2)
  1. TIOCONAZOLE 6.5% 426 [Suspect]
     Indication: VULVOVAGINAL MYCOTIC INFECTION
     Dosage: 1 APPLICATION,SINGLE
     Route: 067
     Dates: start: 20131028, end: 20131028
  2. TIOCONAZOLE 6.5% 426 [Suspect]
     Dosage: 1 APPLICATION, SINGLE
     Route: 067
     Dates: start: 20131020, end: 20131020

REACTIONS (5)
  - Mental disorder [Unknown]
  - Weight decreased [Unknown]
  - Vulvovaginal discomfort [Recovering/Resolving]
  - Vulvovaginal burning sensation [Recovering/Resolving]
  - Drug ineffective [Unknown]
